FAERS Safety Report 10305196 (Version 1)
Quarter: 2014Q3

REPORT INFORMATION
  Report Type: Report from Study
  Country: US (occurrence: US)
  Receive Date: 20140715
  Receipt Date: 20140715
  Transmission Date: 20150326
  Serious: Yes (Life-Threatening)
  Sender: FDA-Public Use
  Company Number: PHEH2014US013884

PATIENT
  Sex: Male

DRUGS (2)
  1. AFINITOR [Suspect]
     Active Substance: EVEROLIMUS
     Indication: OFF LABEL USE
  2. AFINITOR [Suspect]
     Active Substance: EVEROLIMUS
     Indication: COLON CANCER
     Dosage: 10 MG, QD
     Route: 048

REACTIONS (1)
  - Apparent death [Unknown]
